FAERS Safety Report 18649063 (Version 2)
Quarter: 2021Q1

REPORT INFORMATION
  Report Type: Spontaneous
  Country: IT (occurrence: IT)
  Receive Date: 20201222
  Receipt Date: 20210111
  Transmission Date: 20210419
  Serious: Yes (Hospitalization)
  Sender: FDA-Public Use
  Company Number: IT-TEVA-2020-IT-1861012

PATIENT
  Age: 44 Year
  Sex: Female

DRUGS (20)
  1. CLOZAPINE. [Suspect]
     Active Substance: CLOZAPINE
     Indication: PSYCHOTIC SYMPTOM
     Route: 065
     Dates: start: 2018
  2. ARIPIPRAZOLE. [Suspect]
     Active Substance: ARIPIPRAZOLE
     Indication: PSYCHOTIC SYMPTOM
     Dosage: 1 DOSAGE FORMS DAILY; UPON ADMISSION
     Route: 048
     Dates: start: 2018
  3. SODIUM VALPROATE [Suspect]
     Active Substance: VALPROATE SODIUM
     Indication: BIPOLAR DISORDER
  4. DELORAZEPAM [Concomitant]
     Active Substance: DELORAZEPAM
     Indication: PSYCHOTIC SYMPTOM
     Dosage: DURING THE FIRST TWO DAYS IN THE EMERGENCY UNIT; AS NEEDED
     Route: 042
     Dates: start: 201809
  5. CHLORPROMAZINE. [Suspect]
     Active Substance: CHLORPROMAZINE
     Indication: BIPOLAR DISORDER
  6. VALPROIC ACID. [Suspect]
     Active Substance: VALPROIC ACID
     Indication: PSYCHOTIC SYMPTOM
     Dosage: UPON ADMISSION
     Route: 042
     Dates: start: 2018
  7. HALOPERIDOL. [Suspect]
     Active Substance: HALOPERIDOL
     Indication: PSYCHOTIC SYMPTOM
     Dosage: DURING THE FIRST TWO DAYS IN THE EMERGENCY UNIT; AS NEEDED
     Route: 065
     Dates: start: 201809
  8. CHLORPROMAZINE. [Suspect]
     Active Substance: CHLORPROMAZINE
     Indication: PSYCHOTIC SYMPTOM
     Dosage: ON THE FIRST NIGHT OF ADMISSION
     Route: 048
     Dates: start: 2018
  9. LORAZEPAM. [Concomitant]
     Active Substance: LORAZEPAM
     Indication: BIPOLAR DISORDER
     Dosage: UPON ADMISSION; THREE TIME DAILY
     Route: 030
     Dates: start: 2018
  10. ARIPIPRAZOLE. [Suspect]
     Active Substance: ARIPIPRAZOLE
     Indication: BIPOLAR DISORDER
  11. CLOZAPINE. [Suspect]
     Active Substance: CLOZAPINE
     Indication: BIPOLAR DISORDER
     Dosage: FROM DAY 12
     Route: 065
     Dates: start: 2018
  12. SODIUM VALPROATE [Suspect]
     Active Substance: VALPROATE SODIUM
     Indication: PSYCHOTIC SYMPTOM
     Dosage: DURING THE FIRST TWO DAYS IN THE EMERGENCY UNIT; AS NEEDED
     Route: 065
     Dates: start: 201809
  13. ARIPIPRAZOLE. [Suspect]
     Active Substance: ARIPIPRAZOLE
     Indication: PSYCHOTIC SYMPTOM
     Dosage: DURING THE FIRST TWO DAYS IN THE EMERGENCY UNIT; AS NEEDED
     Route: 030
     Dates: start: 201809
  14. DELORAZEPAM [Concomitant]
     Active Substance: DELORAZEPAM
     Indication: BIPOLAR DISORDER
     Dosage: DURING THE FIRST TWO DAYS IN THE EMERGENCY UNIT; AS NEEDED
     Route: 030
     Dates: start: 201809
  15. ARIPIPRAZOLE. [Suspect]
     Active Substance: ARIPIPRAZOLE
     Indication: BIPOLAR DISORDER
     Dosage: UPON ADMISSION
     Route: 030
     Dates: start: 2018
  16. LORAZEPAM. [Concomitant]
     Active Substance: LORAZEPAM
     Indication: PSYCHOTIC SYMPTOM
     Dosage: DURING THE FIRST TWO DAYS IN THE EMERGENCY UNIT; AS NEEDED
     Route: 030
     Dates: start: 201809
  17. VALPROIC ACID. [Suspect]
     Active Substance: VALPROIC ACID
     Indication: BIPOLAR DISORDER
  18. HALOPERIDOL. [Suspect]
     Active Substance: HALOPERIDOL
     Indication: BIPOLAR DISORDER
  19. PROMAZINE [Suspect]
     Active Substance: PROMAZINE
     Indication: PSYCHOTIC SYMPTOM
     Dosage: DURING THE FIRST TWO DAYS IN THE EMERGENCY UNIT; AS NEEDED
     Route: 030
     Dates: start: 201809
  20. PROMAZINE [Suspect]
     Active Substance: PROMAZINE
     Indication: BIPOLAR DISORDER

REACTIONS (7)
  - Pseudomonas infection [Recovered/Resolved]
  - Hypomagnesaemia [Recovered/Resolved]
  - Klebsiella infection [Recovered/Resolved]
  - Neuroleptic malignant syndrome [Recovered/Resolved]
  - Candida infection [Recovered/Resolved]
  - Staphylococcal infection [Recovered/Resolved]
  - Hypokalaemia [Recovered/Resolved]

NARRATIVE: CASE EVENT DATE: 2018
